FAERS Safety Report 7817447-3 (Version None)
Quarter: 2011Q4

REPORT INFORMATION
  Report Type: 
  Country: None (occurrence: None)
  Receive Date: 20111017
  Receipt Date: 20111005
  Transmission Date: 20120403
  Serious: Yes (Hospitalization, Other)
  Sender: FDA-Public Use
  Company Number: US-ROCHE-1003067

PATIENT
  Sex: Male

DRUGS (1)
  1. RITUXAN [Suspect]
     Indication: LYMPHOMA

REACTIONS (5)
  - PNEUMONIA [None]
  - DYSPNOEA [None]
  - PULMONARY OEDEMA [None]
  - ANEURYSM [None]
  - PYREXIA [None]
